FAERS Safety Report 4340511-0 (Version None)
Quarter: 2004Q2

REPORT INFORMATION
  Report Type: 
  Country: None (occurrence: None)
  Receive Date: 20040414
  Receipt Date: 20040329
  Transmission Date: 20050107
  Serious: Yes (Other)
  Sender: FDA-Public Use
  Company Number: PHNU2004DE01412

PATIENT
  Age: 66 Year
  Sex: Female

DRUGS (1)
  1. VISUDYNE [Suspect]
     Indication: MACULAR DEGENERATION
     Dates: start: 20031127, end: 20031127

REACTIONS (7)
  - DISEASE PROGRESSION [None]
  - HAEMORRHAGE [None]
  - MACULAR DEGENERATION [None]
  - READING DISORDER [None]
  - RETINAL HAEMORRHAGE [None]
  - VISUAL DISTURBANCE [None]
  - VITREOUS DISORDER [None]
